FAERS Safety Report 12055657 (Version 2)
Quarter: 2017Q2

REPORT INFORMATION
  Report Type: Report from Study
  Country: ES (occurrence: ES)
  Receive Date: 20160209
  Receipt Date: 20170602
  Transmission Date: 20170829
  Serious: Yes (Hospitalization, Other)
  Sender: FDA-Public Use
  Company Number: ES-BRISTOL-MYERS SQUIBB COMPANY-BMS-2016-005854

PATIENT
  Age: 63 Year
  Sex: Male
  Weight: 70.5 kg

DRUGS (5)
  1. EXTERNAL-VELIPARIB [Suspect]
     Active Substance: VELIPARIB
     Indication: SMALL CELL LUNG CANCER
     Dosage: 240 MG, BID
     Route: 048
     Dates: start: 20151219, end: 20151228
  2. LORAZEPAM. [Concomitant]
     Active Substance: LORAZEPAM
     Indication: INSOMNIA
     Dosage: 1 MG, UNK
     Route: 048
  3. ETOPOSIDE. [Suspect]
     Active Substance: ETOPOSIDE
     Indication: SMALL CELL LUNG CANCER
     Dosage: 100 MG/M2, QCYCLE
     Route: 042
     Dates: start: 20151221
  4. CARBOPLATIN. [Suspect]
     Active Substance: CARBOPLATIN
     Indication: SMALL CELL LUNG CANCER
     Dosage: 1 DF, QCYCLE
     Route: 042
     Dates: start: 20151221
  5. GLIMEPIRIDE. [Concomitant]
     Active Substance: GLIMEPIRIDE
     Indication: DIABETES MELLITUS
     Dosage: 1 MG, UNK
     Route: 048

REACTIONS (1)
  - Toxic neuropathy [Recovered/Resolved]

NARRATIVE: CASE EVENT DATE: 20160104
